FAERS Safety Report 15288093 (Version 1)
Quarter: 2018Q3

REPORT INFORMATION
  Report Type: Spontaneous
  Country: GB (occurrence: GB)
  Receive Date: 20180817
  Receipt Date: 20180817
  Transmission Date: 20181010
  Serious: Yes (Other)
  Sender: FDA-Public Use
  Company Number: GB-ACCORD-070672

PATIENT
  Age: 79 Year
  Sex: Male
  Weight: 73 kg

DRUGS (12)
  1. PREDSOL [Concomitant]
     Active Substance: PREDNISOLONE
     Dosage: TO RIGHT EYE
     Route: 047
     Dates: start: 20161208
  2. TAMSULOSIN [Concomitant]
     Active Substance: TAMSULOSIN
     Dates: start: 20160727
  3. FINASTERIDE. [Suspect]
     Active Substance: FINASTERIDE
     Indication: PRODUCT USED FOR UNKNOWN INDICATION
     Dates: start: 20170919
  4. ACETYLSALICYLIC ACID [Concomitant]
     Active Substance: ASPIRIN
     Dates: start: 20160727
  5. CLINITAS [Concomitant]
     Dosage: RIGHT EYE 3?6 TIMES/DAY
     Route: 050
     Dates: start: 20170622
  6. RANITIDINE. [Concomitant]
     Active Substance: RANITIDINE
     Dates: start: 20160727
  7. PARACETAMOL [Concomitant]
     Active Substance: ACETAMINOPHEN
     Dosage: FOUR TIMES A DAY
     Dates: start: 20160727
  8. DOMPERIDONE [Concomitant]
     Active Substance: DOMPERIDONE
     Dosage: THREE TIMES DAILY
     Dates: start: 20160727
  9. ACICLOVIR [Concomitant]
     Active Substance: ACYCLOVIR
     Dates: start: 20160727
  10. ATORVASTATIN [Concomitant]
     Active Substance: ATORVASTATIN
     Dosage: NIGHT
     Dates: start: 20160727
  11. LISINOPRIL. [Concomitant]
     Active Substance: LISINOPRIL
     Dosage: NIGHT
     Dates: start: 20160727
  12. BRINZOLAMIDE [Concomitant]
     Active Substance: BRINZOLAMIDE
     Dosage: RIGHT EYE
     Route: 050
     Dates: start: 20160727

REACTIONS (1)
  - Blood cholesterol increased [Unknown]

NARRATIVE: CASE EVENT DATE: 20171117
